FAERS Safety Report 15996250 (Version 2)
Quarter: 2019Q3

REPORT INFORMATION
  Report Type: Report from Study
  Country: US (occurrence: US)
  Receive Date: 20190222
  Receipt Date: 20190704
  Transmission Date: 20191004
  Serious: Yes (Hospitalization, Other)
  Sender: FDA-Public Use
  Company Number: US-BIOVITRUM-2019US0324

PATIENT
  Age: 17 Year
  Sex: Male
  Weight: 70.2 kg

DRUGS (21)
  1. BENADRYL [Concomitant]
     Active Substance: DIPHENHYDRAMINE HYDROCHLORIDE
     Route: 048
     Dates: start: 20120101
  2. ALLEGRA [Concomitant]
     Active Substance: FEXOFENADINE HYDROCHLORIDE
     Route: 048
     Dates: start: 20140101
  3. CHOLECALCIFEROL [Concomitant]
     Active Substance: CHOLECALCIFEROL
     Dosage: 2000-4000 MG DAILY
     Route: 048
     Dates: start: 20030101
  4. CURCUMIN [Concomitant]
     Active Substance: CURCUMIN
     Route: 048
     Dates: start: 20140101
  5. ACETYL L CARNITINE [Concomitant]
     Route: 048
     Dates: start: 20140101
  6. MAGNESIUM SUPPLEMENT [Concomitant]
     Route: 048
     Dates: start: 20140101
  7. OMEGA 3 FATTY ACID [Concomitant]
     Active Substance: OMEGA-3 FATTY ACIDS
     Route: 048
     Dates: start: 20130101
  8. ANAKINRA [Suspect]
     Active Substance: ANAKINRA
     Indication: CHRONIC INFANTILE NEUROLOGICAL CUTANEOUS AND ARTICULAR SYNDROME
     Route: 058
     Dates: start: 20130101
  9. CALCIUM [Concomitant]
     Active Substance: CALCIUM
     Route: 048
     Dates: start: 20030101
  10. PROBIOTIC [Concomitant]
     Active Substance: PROBIOTICS NOS
     Route: 048
     Dates: start: 20130101
  11. VITAMIN B2 [Concomitant]
     Active Substance: RIBOFLAVIN
     Route: 048
     Dates: start: 20140101
  12. ZINC SUPPLEMENT [Concomitant]
     Route: 048
     Dates: start: 20140101
  13. MULTIVITAMIN [Concomitant]
     Active Substance: VITAMINS
     Dosage: 1 TABLET DAILY
     Route: 048
     Dates: start: 20030101
  14. BUTALBITAL/ASPIRINE/CAFFEINE [Concomitant]
     Dosage: 1 AS NEEDED
     Route: 048
     Dates: start: 20130401
  15. NALTREXONE [Concomitant]
     Active Substance: NALTREXONE
     Dosage: 5 MG AT BEDTIME (9 PM)
     Route: 048
  16. ONDANSETRON [Concomitant]
     Active Substance: ONDANSETRON
     Dosage: 8 AS NEEDED
     Route: 048
     Dates: start: 20120101
  17. VITAMIN C [Concomitant]
     Active Substance: ASCORBIC ACID
     Route: 048
     Dates: start: 20140101
  18. GRAPESEED/RESEVERATOL [Concomitant]
     Route: 048
     Dates: start: 20140101
  19. VITAMIN B6 (PYRIDOXINE) [Concomitant]
     Route: 048
     Dates: start: 20140101
  20. MITOQUINOL [Concomitant]
     Route: 048
     Dates: start: 20140101
  21. MOTRIN [Concomitant]
     Active Substance: IBUPROFEN
     Dosage: 400 MG AS NEEDED
     Route: 048

REACTIONS (1)
  - Post lumbar puncture syndrome [Recovered/Resolved]

NARRATIVE: CASE EVENT DATE: 20170630
